FAERS Safety Report 25649317 (Version 1)
Quarter: 2025Q3

REPORT INFORMATION
  Report Type: Report from Study
  Country: US (occurrence: US)
  Receive Date: 20250806
  Receipt Date: 20250806
  Transmission Date: 20251021
  Serious: Yes (Other)
  Sender: BIOCODEX
  Company Number: US-BIOCODEX2-2025000989

PATIENT
  Sex: Female
  Weight: 14.5 kg

DRUGS (9)
  1. DIACOMIT [Suspect]
     Active Substance: STIRIPENTOL
     Indication: Severe myoclonic epilepsy of infancy
     Dosage: DAYS 1 THROUGH 7: TAKE 250 MG DISSOLVED IN 10 ML OF WATER IN THE EVENING BY MOUTH ONCE DAILY.
     Route: 048
  2. DIACOMIT [Suspect]
     Active Substance: STIRIPENTOL
     Indication: Severe myoclonic epilepsy of infancy
     Dosage: DAYS 8-14: TAKE 250 MG DISSOLVED IN 10 ML OF WATER BY MOUTH TWICE DAILY.
     Route: 048
  3. DIACOMIT [Suspect]
     Active Substance: STIRIPENTOL
     Indication: Severe myoclonic epilepsy of infancy
     Dosage: DAYS 15 AND THEREAFTER: ONE OF THE 250 MG SACHET PACKETS DISSOLVED IN 10 ML OF WATER IN THE MORNING
     Route: 048
  4. DIACOMIT [Suspect]
     Active Substance: STIRIPENTOL
     Indication: Severe myoclonic epilepsy of infancy
     Dosage: TAKE 250 MG AND 500 MG IN TWO SEPARATE DOSES EACH DAY
     Route: 048
     Dates: start: 20250615
  5. DIACOMIT [Suspect]
     Active Substance: STIRIPENTOL
     Indication: Severe myoclonic epilepsy of infancy
     Dosage: DAYS 15 AND THEREAFTER: ONE OF THE 500 MG SACHET PACKETS DISSOLVED IN 10 ML OF WATER IN THE EVENING
     Route: 048
  6. DIACOMIT [Suspect]
     Active Substance: STIRIPENTOL
     Indication: Severe myoclonic epilepsy of infancy
     Dosage: TAKE 250 MG AND 500 MG IN TWO SEPARATE DOSES EACH DAY
     Route: 048
     Dates: start: 20250615
  7. CLOBAZAM [Concomitant]
     Active Substance: CLOBAZAM
     Indication: Severe myoclonic epilepsy of infancy
     Route: 065
  8. CLONAZEPAM [Concomitant]
     Active Substance: CLONAZEPAM
     Indication: Product used for unknown indication
     Route: 065
  9. EPIDIOLEX [Concomitant]
     Active Substance: CANNABIDIOL
     Indication: Product used for unknown indication
     Route: 065

REACTIONS (6)
  - Product preparation issue [Unknown]
  - Inappropriate schedule of product administration [Unknown]
  - Off label use [Unknown]
  - Sedation [Unknown]
  - Gait disturbance [Unknown]
  - Epilepsy [Unknown]
